FAERS Safety Report 11619578 (Version 2)
Quarter: 2015Q4

REPORT INFORMATION
  Report Type: Report from Study
  Country: US (occurrence: US)
  Receive Date: 20151012
  Receipt Date: 20151206
  Transmission Date: 20160304
  Serious: No
  Sender: FDA-Public Use
  Company Number: PHEH2015US019911

PATIENT
  Age: 69 Year
  Sex: Female
  Weight: 69.84 kg

DRUGS (1)
  1. COSENTYX [Suspect]
     Active Substance: SECUKINUMAB
     Indication: GUTTATE PSORIASIS
     Dosage: 300 MG, QW AT WEEKS 0,1,2,3 AND 4
     Route: 058
     Dates: start: 20151005

REACTIONS (3)
  - Incorrect dose administered [Unknown]
  - Device malfunction [Recovering/Resolving]
  - Off label use [Unknown]

NARRATIVE: CASE EVENT DATE: 20151005
